FAERS Safety Report 6466887-6 (Version None)
Quarter: 2009Q4

REPORT INFORMATION
  Report Type: 
  Country: None (occurrence: None)
  Receive Date: 20091202
  Receipt Date: 20091124
  Transmission Date: 20100525
  Serious: Yes (Other)
  Sender: FDA-Public Use
  Company Number: FR-PFIZER INC-2009288904

PATIENT
  Age: 76 Year
  Sex: Male

DRUGS (3)
  1. METRONIDAZOLE AND METRONIDAZOLE BENZOATE AND METRONIDAZOLE HYDROCHLORI [Suspect]
     Indication: LIVER ABSCESS
     Dosage: 1.5 G/DAY
     Dates: start: 20070423, end: 20070720
  2. ROCEPHIN [Concomitant]
     Indication: LIVER ABSCESS
     Dosage: 1 G INTRAVENOUSLY AFTER EACH DIALYSIS
     Route: 042
     Dates: start: 20070423
  3. OFLOCET [Concomitant]
     Indication: LIVER ABSCESS
     Dosage: 200 MG EVERY 48H
     Dates: start: 20070423

REACTIONS (3)
  - CEREBELLAR SYNDROME [None]
  - CONVULSION [None]
  - POLYNEUROPATHY [None]
